FAERS Safety Report 25951048 (Version 1)
Quarter: 2025Q4

REPORT INFORMATION
  Report Type: Spontaneous
  Country: GB (occurrence: GB)
  Receive Date: 20251023
  Receipt Date: 20251023
  Transmission Date: 20260117
  Serious: Yes (Death)
  Sender: ROCHE
  Company Number: GB-ROCHE-10000416315

PATIENT
  Age: 76 Year
  Sex: Male

DRUGS (1)
  1. HEMLIBRA [Suspect]
     Active Substance: EMICIZUMAB-KXWH
     Indication: Product used for unknown indication
     Dosage: 60MG/0.4ML
     Route: 058
     Dates: start: 20200115

REACTIONS (1)
  - Death [Fatal]
